FAERS Safety Report 15829455 (Version 1)
Quarter: 2019Q1

REPORT INFORMATION
  Report Type: Spontaneous
  Country: US (occurrence: US)
  Receive Date: 20190115
  Receipt Date: 20190115
  Transmission Date: 20190417
  Serious: No
  Sender: FDA-Public Use
  Company Number: US-PERRIGO-18US013686

PATIENT
  Sex: Female
  Weight: 48.98 kg

DRUGS (3)
  1. MULTIVITAMINS, PLAIN [Concomitant]
     Active Substance: VITAMINS
     Indication: SUPPLEMENTATION THERAPY
     Dosage: UNK
     Route: 065
     Dates: start: 2013
  2. TRETINOIN. [Suspect]
     Active Substance: TRETINOIN
     Indication: DRY SKIN
     Dosage: 1 APPLICATION, UP TO 2 TO 3 TIMES NIGHTLY
     Route: 061
     Dates: start: 2017, end: 2017
  3. TRETINOIN. [Suspect]
     Active Substance: TRETINOIN
     Indication: SKIN WRINKLING

REACTIONS (3)
  - Off label use [Recovered/Resolved]
  - Skin wrinkling [Recovered/Resolved]
  - Dry skin [Recovered/Resolved]

NARRATIVE: CASE EVENT DATE: 2017
